FAERS Safety Report 16538572 (Version 1)
Quarter: 2019Q3

REPORT INFORMATION
  Report Type: Spontaneous
  Country: US (occurrence: US)
  Receive Date: 20190708
  Receipt Date: 20190708
  Transmission Date: 20191004
  Serious: No
  Sender: FDA-Public Use
  Company Number: US-009507513-1907USA002159

PATIENT
  Age: 76 Year
  Sex: Male

DRUGS (18)
  1. MERCAPTOPURINE. [Concomitant]
     Active Substance: MERCAPTOPURINE
  2. POTASSIUM (UNSPECIFIED) [Concomitant]
     Active Substance: POTASSIUM
  3. SUCRALFATE. [Concomitant]
     Active Substance: SUCRALFATE
  4. LACTOBACILLUS ACIDOPHILUS [Concomitant]
     Active Substance: LACTOBACILLUS ACIDOPHILUS
  5. XANAX [Concomitant]
     Active Substance: ALPRAZOLAM
  6. AMIODARONE [Concomitant]
     Active Substance: AMIODARONE
  7. PEPCID [Concomitant]
     Active Substance: FAMOTIDINE
  8. IRON (UNSPECIFIED) [Concomitant]
     Active Substance: IRON
  9. PROTONIX [Concomitant]
     Active Substance: PANTOPRAZOLE SODIUM
  10. CUBICIN [Suspect]
     Active Substance: DAPTOMYCIN
     Indication: ENTEROCOCCAL BACTERAEMIA
     Dosage: 500 MILLIGRAM, Q24H
     Route: 042
     Dates: start: 20190622, end: 20190624
  11. CRESTOR [Concomitant]
     Active Substance: ROSUVASTATIN CALCIUM
  12. COLASE [Concomitant]
  13. REMICADE [Concomitant]
     Active Substance: INFLIXIMAB
  14. SULFASALAZINE. [Concomitant]
     Active Substance: SULFASALAZINE
  15. VITAMINS (UNSPECIFIED) [Concomitant]
     Active Substance: VITAMINS
  16. ASPIRIN. [Concomitant]
     Active Substance: ASPIRIN
  17. METFORMIN [Concomitant]
     Active Substance: METFORMIN HYDROCHLORIDE
  18. ALLOPURINOL. [Concomitant]
     Active Substance: ALLOPURINOL

REACTIONS (2)
  - Blood creatine phosphokinase increased [Recovered/Resolved]
  - Product use in unapproved indication [Unknown]

NARRATIVE: CASE EVENT DATE: 20190622
